FAERS Safety Report 24705563 (Version 2)
Quarter: 2025Q1

REPORT INFORMATION
  Report Type: Spontaneous
  Country: US (occurrence: US)
  Receive Date: 20241206
  Receipt Date: 20250116
  Transmission Date: 20250409
  Serious: No
  Sender: SANOFI AVENTIS
  Company Number: US-SA-2024SA358232

PATIENT
  Age: 66 Year
  Sex: Female

DRUGS (13)
  1. DUPIXENT [Suspect]
     Active Substance: DUPILUMAB
     Indication: Nasal polyps
     Dosage: 300 MG QOW
     Route: 058
     Dates: start: 20241112
  2. AZELASTINE HYDROCHLORIDE [Concomitant]
     Active Substance: AZELASTINE HYDROCHLORIDE
  3. CETIRIZINE HYDROCHLORIDE [Concomitant]
     Active Substance: CETIRIZINE HYDROCHLORIDE
  4. FLONASE ALLERGY RELIEF [Concomitant]
     Active Substance: FLUTICASONE PROPIONATE
  5. LEVOTHYROXINE [Concomitant]
     Active Substance: LEVOTHYROXINE
  6. MELATONIN [Concomitant]
     Active Substance: MELATONIN
  7. MOUNJARO [Concomitant]
     Active Substance: TIRZEPATIDE
  8. ONDANSETRON [Concomitant]
     Active Substance: ONDANSETRON
  9. MINERALS\VITAMINS [Concomitant]
     Active Substance: MINERALS\VITAMINS
  10. SALINE [Concomitant]
     Active Substance: SODIUM CHLORIDE
  11. TACROLIMUS [Concomitant]
     Active Substance: TACROLIMUS
  12. TRELEGY ELLIPTA [Concomitant]
     Active Substance: FLUTICASONE FUROATE\UMECLIDINIUM BROMIDE\VILANTEROL TRIFENATATE
  13. TRIAMCINOLONE [Concomitant]
     Active Substance: TRIAMCINOLONE

REACTIONS (8)
  - Abdominal discomfort [Recovering/Resolving]
  - Vomiting [Unknown]
  - Feeling abnormal [Unknown]
  - Sleep disorder [Unknown]
  - Nausea [Unknown]
  - Dyspnoea [Unknown]
  - Pruritus [Unknown]
  - Product preparation error [Unknown]

NARRATIVE: CASE EVENT DATE: 20241101
